FAERS Safety Report 8984616 (Version 1)
Quarter: 2012Q4

REPORT INFORMATION
  Report Type: 
  Country: FR (occurrence: FR)
  Receive Date: 20121225
  Receipt Date: 20121225
  Transmission Date: 20130627
  Serious: Yes (Hospitalization)
  Sender: FDA-Public Use
  Company Number: FR-SANOFI-AVENTIS-2012SA092665

PATIENT
  Age: 72 Year
  Sex: Female

DRUGS (8)
  1. LOVENOX [Suspect]
     Indication: DRUG USE FOR UNKNOWN INDICATION
     Dosage: 4000 UI anti-Xa/ 0.4ml
     Route: 058
     Dates: start: 20120920
  2. CIPLOX [Suspect]
     Indication: DRUG USE FOR UNKNOWN INDICATION
     Dosage: 200mg/100ml
     Route: 042
     Dates: start: 20120923, end: 20120928
  3. ROCEPHINE [Suspect]
     Indication: DRUG USE FOR UNKNOWN INDICATION
     Route: 042
     Dates: start: 20120923, end: 20120928
  4. CEFAZOLIN [Concomitant]
     Indication: PROPHYLAXIS
     Route: 042
     Dates: start: 20120919, end: 20120919
  5. EPHEDRINE [Concomitant]
     Route: 042
     Dates: start: 20120919, end: 20120919
  6. MIDAZOLAM [Concomitant]
     Route: 042
     Dates: start: 20120919, end: 20120919
  7. KETAMINE [Concomitant]
     Dates: start: 20120919, end: 20120919
  8. NIMBEX [Concomitant]
     Route: 042
     Dates: start: 20120919, end: 20120919

REACTIONS (2)
  - Cholestasis [Recovered/Resolved]
  - Hepatic enzyme increased [Recovered/Resolved]
